FAERS Safety Report 12220690 (Version 1)
Quarter: 2016Q1

REPORT INFORMATION
  Report Type: Spontaneous
  Country: CA (occurrence: CA)
  Receive Date: 20160330
  Receipt Date: 20160330
  Transmission Date: 20160526
  Serious: Yes (Hospitalization, Other)
  Sender: FDA-Public Use
  Company Number: CA-APOTEX-2016AP007360

PATIENT
  Age: 58 Year
  Sex: Female

DRUGS (9)
  1. PROPOFOL. [Suspect]
     Active Substance: PROPOFOL
     Indication: STATUS EPILEPTICUS
     Dosage: UNK, UNKNOWN
     Route: 065
  2. PHENYTOIN. [Suspect]
     Active Substance: PHENYTOIN
     Indication: STATUS EPILEPTICUS
     Dosage: UNK UNK, UNKNOWN
     Route: 065
  3. APO-VALPROIC [Suspect]
     Active Substance: VALPROIC ACID
     Indication: STATUS EPILEPTICUS
     Dosage: UNK UNK, UNKNOWN
     Route: 065
  4. KETAMINE [Suspect]
     Active Substance: KETAMINE
     Indication: STATUS EPILEPTICUS
     Dosage: UNK, UNKNOWN
     Route: 065
  5. METHYLPREDNISOLONE. [Concomitant]
     Active Substance: METHYLPREDNISOLONE
     Indication: STATUS EPILEPTICUS
     Dosage: 4 G, TOTAL
     Route: 042
  6. PHENOBARBITAL. [Concomitant]
     Active Substance: PHENOBARBITAL
     Indication: STATUS EPILEPTICUS
     Dosage: 150 MG, Q.12H
     Route: 065
  7. APO-MIDAZOLAM INJECTABLE (APOTEX STD) [Suspect]
     Active Substance: MIDAZOLAM HYDROCHLORIDE
     Indication: STATUS EPILEPTICUS
     Dosage: UNK UNK, UNKNOWN
     Route: 065
  8. APO-LEVETIRACETAM [Suspect]
     Active Substance: LEVETIRACETAM
     Indication: STATUS EPILEPTICUS
     Dosage: UNK UNK, UNKNOWN
     Route: 065
  9. ISOFLURANE. [Suspect]
     Active Substance: ISOFLURANE
     Indication: STATUS EPILEPTICUS
     Dosage: UNK, UNKNOWN
     Route: 065

REACTIONS (6)
  - Hypotension [Unknown]
  - Left ventricular hypertrophy [Unknown]
  - Intestinal ischaemia [Unknown]
  - Cardiomegaly [Unknown]
  - Systemic inflammatory response syndrome [Unknown]
  - Procedural intestinal perforation [Unknown]
